FAERS Safety Report 5690019-5 (Version None)
Quarter: 2008Q2

REPORT INFORMATION
  Report Type: 
  Country: None (occurrence: None)
  Receive Date: 20080401
  Receipt Date: 20080318
  Transmission Date: 20081010
  Serious: Yes (Hospitalization, Other)
  Sender: FDA-Public Use
  Company Number: JP-ELI_LILLY_AND_COMPANY-JP200802002927

PATIENT
  Sex: Male
  Weight: 67 kg

DRUGS (4)
  1. ZYPREXA [Suspect]
     Indication: SCHIZOPHRENIA
     Dosage: 20 MG, DAILY (1/D)
     Route: 048
     Dates: start: 20050729, end: 20080213
  2. SEROQUEL [Concomitant]
     Indication: SCHIZOPHRENIA
     Dosage: 600 MG, DAILY (1/D)
     Route: 048
     Dates: start: 20080213, end: 20080219
  3. CHLORPROMAZINE HYDROCHLORIDE [Concomitant]
     Indication: SCHIZOPHRENIA
     Dosage: 50 MG, DAILY (1/D)
     Route: 048
     Dates: start: 20080213, end: 20080219
  4. RISPERDAL [Concomitant]
     Indication: SCHIZOPHRENIA
     Dosage: 12 MG, DAILY (1/D)
     Route: 048
     Dates: start: 20080227

REACTIONS (5)
  - ANXIETY [None]
  - DERMATITIS EXFOLIATIVE [None]
  - ECZEMA [None]
  - INSOMNIA [None]
  - PARKINSONISM [None]
